FAERS Safety Report 5420532-7 (Version None)
Quarter: 2007Q3

REPORT INFORMATION
  Report Type: 
  Country: None (occurrence: None)
  Receive Date: 20070821
  Receipt Date: 20070618
  Transmission Date: 20080115
  Serious: No
  Sender: FDA-Public Use
  Company Number: US-KINGPHARMUSA00001-K200700757

PATIENT

DRUGS (2)
  1. CYTOMEL [Suspect]
     Indication: THYROIDECTOMY
     Dosage: 50 MCG, QD
     Route: 048
     Dates: start: 20040101, end: 20070613
  2. CYTOMEL [Suspect]
     Dosage: 62.5 MCG, QD
     Route: 048
     Dates: start: 20070614

REACTIONS (3)
  - MALAISE [None]
  - PAIN IN EXTREMITY [None]
  - THYROID FUNCTION TEST ABNORMAL [None]
